FAERS Safety Report 11664103 (Version 1)
Quarter: 2015Q4

REPORT INFORMATION
  Report Type: Spontaneous
  Country: DE (occurrence: DE)
  Receive Date: 20151027
  Receipt Date: 20151027
  Transmission Date: 20160304
  Serious: Yes (Other)
  Sender: FDA-Public Use
  Company Number: DE-SUN PHARMACEUTICAL INDUSTRIES LTD-2015RR-105122

PATIENT

DRUGS (2)
  1. TETESEPT FOLS?URE 600 (NEM) [Concomitant]
     Indication: PROPHYLAXIS OF NEURAL TUBE DEFECT
     Dosage: 0.6 MG, DAILY, FROM 7.6-39.3 GESTATIONAL WEEK
     Route: 064
     Dates: start: 20140315, end: 20141022
  2. VENLAFAXINE [Suspect]
     Active Substance: VENLAFAXINE HYDROCHLORIDE
     Indication: DEPRESSION
     Dosage: 150 MG, DAILY, FROM 0-39.3 GESTATIONAL WEEK
     Route: 064
     Dates: start: 20140119, end: 20141022

REACTIONS (3)
  - Maternal drugs affecting foetus [None]
  - Neonatal respiratory distress syndrome [Recovered/Resolved]
  - Foetal exposure during pregnancy [None]

NARRATIVE: CASE EVENT DATE: 20141022
